FAERS Safety Report 21919918 (Version 4)
Quarter: 2023Q1

REPORT INFORMATION
  Report Type: Spontaneous
  Country: US (occurrence: US)
  Receive Date: 20230127
  Receipt Date: 20230309
  Transmission Date: 20230418
  Serious: No
  Sender: FDA-Public Use
  Company Number: US-PFIZER INC-202300033884

PATIENT
  Sex: Female

DRUGS (1)
  1. DEPO-PROVERA [Suspect]
     Active Substance: MEDROXYPROGESTERONE ACETATE
     Dosage: UNK
     Route: 058

REACTIONS (4)
  - Needle issue [Unknown]
  - Poor quality device used [Unknown]
  - Drug dose omission by device [Unknown]
  - Product administration error [Unknown]
